FAERS Safety Report 8763970 (Version 1)
Quarter: 2012Q4

REPORT INFORMATION
  Report Type: 
  Country: US (occurrence: US)
  Receive Date: 20120831
  Receipt Date: 20120831
  Transmission Date: 20130627
  Serious: Yes (Other)
  Sender: FDA-Public Use
  Company Number: US-JNJFOC-20070200880

PATIENT
  Sex: Female

DRUGS (3)
  1. RISPERDAL [Suspect]
     Indication: DELUSIONAL DISORDER, UNSPECIFIED TYPE
     Dates: end: 20060919
  2. RISPERDAL [Suspect]
     Indication: ANXIETY
     Dates: end: 20060919
  3. RISPERDAL [Suspect]
     Indication: PARANOIA
     Dates: end: 20060919

REACTIONS (6)
  - Diabetes mellitus [Not Recovered/Not Resolved]
  - Galactorrhoea [Unknown]
  - Blood prolactin increased [Unknown]
  - Weight increased [Recovering/Resolving]
  - Tardive dyskinesia [Unknown]
  - Diabetic foot [Unknown]
